FAERS Safety Report 9288969 (Version 1)
Quarter: 2013Q2

REPORT INFORMATION
  Report Type: Spontaneous
  Country: RU (occurrence: RU)
  Receive Date: 20130514
  Receipt Date: 20130514
  Transmission Date: 20140414
  Serious: Yes (Other)
  Sender: FDA-Public Use
  Company Number: RU-GLAXOSMITHKLINE-B0891366A

PATIENT
  Age: 74 Year
  Sex: Female

DRUGS (3)
  1. VENTOLIN [Suspect]
     Indication: PRODUCT USED FOR UNKNOWN INDICATION
     Route: 055
     Dates: start: 2013, end: 20130505
  2. CAPOTEN [Concomitant]
  3. GLYCIN [Concomitant]

REACTIONS (3)
  - Tachycardia [Recovered/Resolved]
  - Arrhythmia [Unknown]
  - Blood pressure increased [Unknown]
